FAERS Safety Report 5968433-X (Version None)
Quarter: 2008Q4

REPORT INFORMATION
  Report Type: 
  Country: None (occurrence: None)
  Receive Date: 20081119
  Receipt Date: 20080730
  Transmission Date: 20090506
  Serious: No
  Sender: FDA-Public Use
  Company Number: WAES 0804USA06327

PATIENT
  Age: 64 Year
  Sex: Male
  Weight: 147.8726 kg

DRUGS (3)
  1. JANUVIA [Suspect]
     Indication: DIABETES MELLITUS
     Dosage: 100 MG/DAILY/PO
     Route: 048
     Dates: start: 20080331
  2. FLOMAX [Concomitant]
  3. ALLOPURINOL [Concomitant]

REACTIONS (2)
  - ECZEMA [None]
  - RASH [None]
